FAERS Safety Report 7170666-4 (Version None)
Quarter: 2010Q4

REPORT INFORMATION
  Report Type: 
  Country: None (occurrence: None)
  Receive Date: 20101217
  Receipt Date: 20101210
  Transmission Date: 20110411
  Serious: Yes (Life-Threatening, Hospitalization)
  Sender: FDA-Public Use
  Company Number: B0689570A

PATIENT
  Sex: Female
  Weight: 61 kg

DRUGS (1)
  1. MALARONE [Suspect]
     Indication: MALARIA PROPHYLAXIS
     Route: 065
     Dates: start: 20101102, end: 20101116

REACTIONS (1)
  - AUTOIMMUNE THROMBOCYTOPENIA [None]
